FAERS Safety Report 21320497 (Version 1)
Quarter: 2022Q3

REPORT INFORMATION
  Report Type: Report from Study
  Country: DE (occurrence: DE)
  Receive Date: 20220911
  Receipt Date: 20220911
  Transmission Date: 20221027
  Serious: Yes (Hospitalization, Other)
  Sender: FDA-Public Use
  Company Number: DE-TAKEDA-2022TUS062530

PATIENT
  Age: 10 Year
  Sex: Female

DRUGS (65)
  1. TEDUGLUTIDE [Suspect]
     Active Substance: TEDUGLUTIDE
     Indication: Short-bowel syndrome
     Dosage: 0.8 MILLIGRAM, QD
     Route: 042
     Dates: start: 20171001, end: 20200825
  2. TEDUGLUTIDE [Suspect]
     Active Substance: TEDUGLUTIDE
     Indication: Short-bowel syndrome
     Dosage: 0.8 MILLIGRAM, QD
     Route: 042
     Dates: start: 20171001, end: 20200825
  3. TEDUGLUTIDE [Suspect]
     Active Substance: TEDUGLUTIDE
     Indication: Short-bowel syndrome
     Dosage: 0.8 MILLIGRAM, QD
     Route: 042
     Dates: start: 20171001, end: 20200825
  4. TEDUGLUTIDE [Suspect]
     Active Substance: TEDUGLUTIDE
     Indication: Short-bowel syndrome
     Dosage: 0.8 MILLIGRAM, QD
     Route: 042
     Dates: start: 20171001, end: 20200825
  5. TEDUGLUTIDE [Suspect]
     Active Substance: TEDUGLUTIDE
     Dosage: 0.9 MILLIGRAM, QD
     Route: 042
     Dates: start: 20200826, end: 20210317
  6. TEDUGLUTIDE [Suspect]
     Active Substance: TEDUGLUTIDE
     Dosage: 0.9 MILLIGRAM, QD
     Route: 042
     Dates: start: 20200826, end: 20210317
  7. TEDUGLUTIDE [Suspect]
     Active Substance: TEDUGLUTIDE
     Dosage: 0.9 MILLIGRAM, QD
     Route: 042
     Dates: start: 20200826, end: 20210317
  8. TEDUGLUTIDE [Suspect]
     Active Substance: TEDUGLUTIDE
     Dosage: 0.9 MILLIGRAM, QD
     Route: 042
     Dates: start: 20200826, end: 20210317
  9. TEDUGLUTIDE [Suspect]
     Active Substance: TEDUGLUTIDE
     Dosage: 0.9 MILLIGRAM, QD
     Route: 042
     Dates: start: 20210318, end: 20210528
  10. TEDUGLUTIDE [Suspect]
     Active Substance: TEDUGLUTIDE
     Dosage: 0.9 MILLIGRAM, QD
     Route: 042
     Dates: start: 20210318, end: 20210528
  11. TEDUGLUTIDE [Suspect]
     Active Substance: TEDUGLUTIDE
     Dosage: 0.9 MILLIGRAM, QD
     Route: 042
     Dates: start: 20210318, end: 20210528
  12. TEDUGLUTIDE [Suspect]
     Active Substance: TEDUGLUTIDE
     Dosage: 0.9 MILLIGRAM, QD
     Route: 042
     Dates: start: 20210318, end: 20210528
  13. LEVOCARNITIN [Concomitant]
     Indication: Carnitine deficiency
     Dosage: 50 MILLIGRAM
     Route: 042
     Dates: start: 20190323, end: 20190801
  14. LEVOCARNITIN [Concomitant]
     Dosage: 50 MILLIGRAM
     Route: 042
     Dates: start: 20190802
  15. CALCITRIOL [Concomitant]
     Active Substance: CALCITRIOL
     Indication: Vitamin supplementation
     Dosage: UNK
     Route: 042
     Dates: start: 20190323, end: 20190801
  16. CALCITRIOL [Concomitant]
     Active Substance: CALCITRIOL
     Indication: Vitamin D deficiency
     Dosage: UNK
     Route: 042
     Dates: start: 20190802
  17. CALCITRIOL [Concomitant]
     Active Substance: CALCITRIOL
     Indication: Renal impairment
     Dosage: UNK
     Route: 042
     Dates: start: 20210723
  18. ERYTHROPOIETIN [Concomitant]
     Active Substance: ERYTHROPOIETIN
     Indication: Anaemia
     Dosage: UNK
     Route: 042
     Dates: start: 20190323, end: 20210304
  19. AMPHOTERICIN B [Concomitant]
     Active Substance: AMPHOTERICIN B
     Indication: Antifungal treatment
     Dosage: 1 MILLILITER, QID
     Route: 048
     Dates: start: 20161120, end: 20191123
  20. AMPHOTERICIN B [Concomitant]
     Active Substance: AMPHOTERICIN B
     Dosage: 2 MILLILITER, QID
     Route: 048
     Dates: start: 20191209
  21. VITADRAL [Concomitant]
     Indication: Vitamin A deficiency
     Dosage: 4 GTT DROPS, QD
     Route: 048
     Dates: start: 20150522, end: 20191005
  22. VITADRAL [Concomitant]
     Dosage: 6 GTT DROPS, QD
     Route: 048
     Dates: start: 20191006, end: 20200727
  23. VITADRAL [Concomitant]
     Dosage: 15 GTT DROPS, QD
     Route: 047
     Dates: start: 20200728
  24. ZINC OROTATE [Concomitant]
     Active Substance: ZINC OROTATE
     Indication: Supplementation therapy
     Dosage: 12.5 MILLIGRAM, QD
     Route: 048
     Dates: start: 20190208, end: 20191208
  25. ZINC OROTATE [Concomitant]
     Active Substance: ZINC OROTATE
     Dosage: 25 MILLIGRAM, QD
     Route: 048
     Dates: start: 20191209, end: 20200727
  26. ZINC OROTATE [Concomitant]
     Active Substance: ZINC OROTATE
     Dosage: 37.5 MILLIGRAM, QD
     Route: 048
     Dates: start: 20200728
  27. XYLOMETAZOLINE HYDROCHLORIDE [Concomitant]
     Active Substance: XYLOMETAZOLINE HYDROCHLORIDE
     Indication: Nasal decongestion therapy
     Dosage: UNK
     Route: 055
     Dates: start: 20161120, end: 20190527
  28. HEPARIN [Concomitant]
     Active Substance: HEPARIN SODIUM
     Indication: Coagulopathy
     Dosage: UNK
     Route: 042
     Dates: start: 20190323, end: 20200118
  29. HEPARIN [Concomitant]
     Active Substance: HEPARIN SODIUM
     Dosage: UNK
     Route: 042
     Dates: start: 20200119, end: 20201030
  30. HEPARIN [Concomitant]
     Active Substance: HEPARIN SODIUM
     Dosage: UNK
     Route: 042
     Dates: start: 20201031, end: 20210303
  31. FUROSEMIDE [Concomitant]
     Active Substance: FUROSEMIDE
     Indication: Dehydration
     Dosage: 280 MILLIGRAM
     Route: 042
     Dates: start: 20190323, end: 20190401
  32. FUROSEMIDE [Concomitant]
     Active Substance: FUROSEMIDE
     Dosage: 15 MILLIGRAM, QID
     Route: 048
     Dates: start: 20191123, end: 20191208
  33. FUROSEMIDE [Concomitant]
     Active Substance: FUROSEMIDE
     Dosage: 20 MILLIGRAM, QID
     Route: 048
     Dates: start: 20191209, end: 20200118
  34. FUROSEMIDE [Concomitant]
     Active Substance: FUROSEMIDE
     Dosage: 250 MILLIGRAM
     Route: 048
     Dates: start: 20200119, end: 20201030
  35. FUROSEMIDE [Concomitant]
     Active Substance: FUROSEMIDE
     Dosage: 300 MILLIGRAM
     Route: 048
     Dates: start: 20201031, end: 20210303
  36. FUROSEMIDE [Concomitant]
     Active Substance: FUROSEMIDE
     Dosage: 10 MILLIGRAM, BID
     Route: 048
     Dates: start: 20201024, end: 20210303
  37. FUROSEMIDE [Concomitant]
     Active Substance: FUROSEMIDE
     Dosage: 15 MILLIGRAM, TID
     Route: 048
     Dates: start: 20210304
  38. FUROSEMIDE [Concomitant]
     Active Substance: FUROSEMIDE
     Dosage: 68.6 MILLIGRAM, QD
     Route: 042
     Dates: start: 20211215
  39. FERRLECIT [Concomitant]
     Active Substance: SODIUM FERRIC GLUCONATE COMPLEX
     Indication: Iron deficiency anaemia
     Dosage: 10 MILLIGRAM, BID
     Route: 042
     Dates: start: 20190323, end: 20190801
  40. FERRLECIT [Concomitant]
     Active Substance: SODIUM FERRIC GLUCONATE COMPLEX
     Indication: Iron deficiency
     Dosage: 10 MILLIGRAM
     Route: 042
     Dates: start: 20190802, end: 20200521
  41. FERRLECIT [Concomitant]
     Active Substance: SODIUM FERRIC GLUCONATE COMPLEX
     Dosage: UNK
     Route: 042
     Dates: start: 20200825, end: 20210303
  42. FERRLECIT [Concomitant]
     Active Substance: SODIUM FERRIC GLUCONATE COMPLEX
     Dosage: UNK
     Route: 042
     Dates: start: 20210304
  43. FERRLECIT [Concomitant]
     Active Substance: SODIUM FERRIC GLUCONATE COMPLEX
     Dosage: 37.5 MILLIGRAM
     Route: 042
     Dates: start: 20210723
  44. Prontosan [Concomitant]
     Indication: Wound treatment
     Dosage: UNK UNK, QD
     Route: 061
     Dates: start: 20200104, end: 20200520
  45. Octenisan [Concomitant]
     Indication: Wound
     Dosage: UNK UNK, QD
     Route: 061
     Dates: start: 20200104, end: 20200520
  46. FLUCLOXACILLIN [Concomitant]
     Active Substance: FLUCLOXACILLIN
     Indication: Sepsis
     Dosage: UNK
     Route: 042
     Dates: start: 20200525, end: 20200606
  47. OMNITROPE [Concomitant]
     Active Substance: SOMATROPIN
     Indication: Failure to thrive
     Dosage: 0.45 MILLIGRAM, QD
     Route: 058
     Dates: start: 20200728
  48. CREON [Concomitant]
     Active Substance: PANCRELIPASE AMYLASE\PANCRELIPASE LIPASE\PANCRELIPASE PROTEASE
     Indication: Pancreatic failure
     Dosage: UNK
     Route: 048
     Dates: start: 20200728, end: 20201002
  49. CREON [Concomitant]
     Active Substance: PANCRELIPASE AMYLASE\PANCRELIPASE LIPASE\PANCRELIPASE PROTEASE
     Dosage: UNK
     Route: 048
     Dates: start: 20201003
  50. LENOGRASTIM [Concomitant]
     Active Substance: LENOGRASTIM
     Indication: Neutropenia
     Dosage: 1 INTERNATIONAL UNIT
     Route: 042
     Dates: start: 20210304
  51. BLEMAREN [Concomitant]
     Indication: Renal failure
     Dosage: UNK UNK, BID
     Route: 048
     Dates: start: 20210304
  52. MEROPENEM [Concomitant]
     Active Substance: MEROPENEM
     Indication: Pyrexia
     Dosage: UNK
     Route: 042
     Dates: start: 20210614, end: 20210616
  53. GENTAMICIN [Concomitant]
     Active Substance: GENTAMICIN
     Indication: Pyrexia
     Dosage: UNK
     Route: 042
     Dates: start: 20210615, end: 20210616
  54. AMPHOTERICIN B [Concomitant]
     Active Substance: AMPHOTERICIN B
     Indication: Pyrexia
     Dosage: UNK
     Route: 042
     Dates: start: 20210615, end: 20210616
  55. FLUCYTOSINE [Concomitant]
     Active Substance: FLUCYTOSINE
     Indication: Candida infection
     Dosage: UNK
     Route: 042
     Dates: start: 20210615, end: 20210617
  56. GRANULOCYTE COLONY-STIMULATING FACTOR NOS [Concomitant]
     Active Substance: GRANULOCYTE COLONY-STIMULATING FACTOR NOS
     Indication: Neutropenia
     Dosage: UNK UNK, QD
     Route: 058
     Dates: start: 20210616
  57. NEFROCARNIT [Concomitant]
     Indication: Carnitine deficiency
     Dosage: 50 MILLIGRAM
     Route: 042
     Dates: start: 20210723
  58. COTRIM [Concomitant]
     Active Substance: SULFAMETHOXAZOLE\TRIMETHOPRIM
     Indication: Prophylaxis
     Dosage: 720 MILLIGRAM
     Route: 042
     Dates: start: 20210723
  59. ERYTHROPOIETIN [Concomitant]
     Active Substance: ERYTHROPOIETIN
     Indication: Anaemia
     Dosage: UNK
     Route: 058
     Dates: start: 20210828
  60. Kalinor [Concomitant]
     Indication: Hypokalaemia
     Dosage: UNK UNK, QD
     Route: 048
     Dates: start: 20210919
  61. PANTOPRAZOLE [Concomitant]
     Active Substance: PANTOPRAZOLE
     Indication: Gastric ulcer
     Dosage: 10 MILLIGRAM
     Route: 048
     Dates: start: 20210919
  62. PANCRELIPASE [Concomitant]
     Active Substance: PANCRELIPASE
     Indication: Dyspepsia
     Dosage: UNK UNK, TID
     Route: 048
     Dates: start: 20210919
  63. VITAMINS [Concomitant]
     Active Substance: VITAMINS
     Indication: Hypovitaminosis
     Dosage: 6 MILLILITER, QD
     Route: 042
     Dates: start: 20211215
  64. ERGOCALCIFEROL\PHYTONADIONE\RETINOL\TOCOPHEROL [Concomitant]
     Active Substance: ERGOCALCIFEROL\PHYTONADIONE\RETINOL\TOCOPHEROL
     Indication: Hypovitaminosis
     Dosage: 6 MILLILITER, QD
     Route: 042
     Dates: start: 20211215
  65. ENOXAPARIN SODIUM [Concomitant]
     Active Substance: ENOXAPARIN SODIUM
     Indication: Coagulopathy
     Dosage: 80 MILLIGRAM
     Route: 042
     Dates: start: 20211215

REACTIONS (1)
  - Neutropenia [Recovered/Resolved]

NARRATIVE: CASE EVENT DATE: 20210316
